FAERS Safety Report 17037354 (Version 1)
Quarter: 2019Q4

REPORT INFORMATION
  Report Type: Spontaneous
  Country: US (occurrence: US)
  Receive Date: 20191115
  Receipt Date: 20191115
  Transmission Date: 20200122
  Serious: Yes (Other)
  Sender: FDA-Public Use
  Company Number: US-PFIZER INC-2019363109

PATIENT
  Age: 98 Year
  Sex: Female
  Weight: 65.76 kg

DRUGS (2)
  1. XALKORI [Suspect]
     Active Substance: CRIZOTINIB
     Indication: LUNG CARCINOMA CELL TYPE UNSPECIFIED STAGE IV
     Dosage: 20 MG, 2X/DAY
     Route: 048
     Dates: start: 20190823, end: 20191029
  2. XALKORI [Suspect]
     Active Substance: CRIZOTINIB
     Indication: PULMONARY OEDEMA
     Dosage: 200 MG, UNK

REACTIONS (5)
  - Oedema peripheral [Unknown]
  - Cardiac failure [Unknown]
  - Wound [Unknown]
  - Neoplasm progression [Not Recovered/Not Resolved]
  - Impaired healing [Unknown]
